FAERS Safety Report 25269031 (Version 1)
Quarter: 2025Q2

REPORT INFORMATION
  Report Type: Spontaneous
  Country: US (occurrence: None)
  Receive Date: 20250502
  Receipt Date: 20250502
  Transmission Date: 20250717
  Serious: Yes (Other)
  Sender: FDA-CTU
  Company Number: None

PATIENT
  Age: 80 Year
  Sex: Male
  Weight: 81.65 kg

DRUGS (1)
  1. GEMTESA [Suspect]
     Active Substance: VIBEGRON
     Dosage: FREQUENCY : DAILY;?
     Route: 048

REACTIONS (3)
  - Nasal congestion [None]
  - Ear congestion [None]
  - Vertigo [None]

NARRATIVE: CASE EVENT DATE: 20250325
